FAERS Safety Report 21800907 (Version 1)
Quarter: 2022Q4

REPORT INFORMATION
  Report Type: Spontaneous
  Country: NO (occurrence: NO)
  Receive Date: 20221230
  Receipt Date: 20221230
  Transmission Date: 20230112
  Serious: Yes (Disabling)
  Sender: FDA-Public Use
  Company Number: None

PATIENT
  Age: 54 Year
  Sex: Female

DRUGS (3)
  1. AJOVY [Suspect]
     Active Substance: FREMANEZUMAB-VFRM
     Indication: Migraine
     Dosage: 13TH DOSE 01/MAY/2022
     Dates: start: 20210530, end: 20220501
  2. ESTRADIOL VALERATE\NORETHINDRONE ACETATE [Concomitant]
     Active Substance: ESTRADIOL VALERATE\NORETHINDRONE ACETATE
     Indication: Menopausal symptoms
     Dosage: FOR ACTIVE INGREDIENT ESTRADIOL THE STRENGTH IS 1 MILLIGRAM ,FOR ACTIVE INGREDIENT NORETHISTERONE TH
     Dates: start: 20220110, end: 20220630
  3. COMIRNATY [Concomitant]
     Active Substance: TOZINAMERAN
     Indication: Immunisation
     Dosage: DOSE NO. IN SERIES: 3
     Dates: start: 20211203

REACTIONS (4)
  - Taste disorder [Not Recovered/Not Resolved]
  - Neurosensory hypoacusis [Not Recovered/Not Resolved]
  - Anisocoria [Not Recovered/Not Resolved]
  - Tinnitus [Not Recovered/Not Resolved]

NARRATIVE: CASE EVENT DATE: 20210601
